FAERS Safety Report 8517537 (Version 3)
Quarter: 2015Q4

REPORT INFORMATION
  Report Type: Spontaneous
  Country: US (occurrence: US)
  Receive Date: 20120417
  Receipt Date: 20151125
  Transmission Date: 20160305
  Serious: Yes (Other)
  Sender: FDA-Public Use
  Company Number: US-ASTRAZENECA-2012SE00357

PATIENT
  Age: 64 Year
  Sex: Female
  Weight: 68 kg

DRUGS (7)
  1. NEXIUM [Suspect]
     Active Substance: ESOMEPRAZOLE MAGNESIUM
     Indication: GASTROOESOPHAGEAL REFLUX DISEASE
     Dosage: 40 MG, TWICE DAILY WHEN NEEDED
     Route: 048
     Dates: start: 2003
  2. NEXIUM [Suspect]
     Active Substance: ESOMEPRAZOLE MAGNESIUM
     Indication: GASTROOESOPHAGEAL REFLUX DISEASE
     Dosage: 40 MG, ONE TO 2 TIMES DAILY
     Route: 048
  3. SYNTHROID [Concomitant]
     Active Substance: LEVOTHYROXINE SODIUM
     Indication: THYROID DISORDER
     Dosage: 88, DAILY
     Dates: start: 2008
  4. ATORVASTATIN [Concomitant]
     Active Substance: ATORVASTATIN
     Indication: BLOOD CHOLESTEROL ABNORMAL
  5. NEXIUM [Suspect]
     Active Substance: ESOMEPRAZOLE MAGNESIUM
     Indication: GASTROOESOPHAGEAL REFLUX DISEASE
     Route: 048
     Dates: start: 2003
  6. NEXIUM [Suspect]
     Active Substance: ESOMEPRAZOLE MAGNESIUM
     Indication: GASTROOESOPHAGEAL REFLUX DISEASE
     Route: 048
  7. LOSARTAN. [Concomitant]
     Active Substance: LOSARTAN
     Indication: BLOOD PRESSURE ABNORMAL
     Dosage: DAILY

REACTIONS (11)
  - Nasal congestion [Unknown]
  - Reflux laryngitis [Unknown]
  - Off label use [Unknown]
  - Bronchitis [Unknown]
  - Dysphagia [Unknown]
  - Malaise [Unknown]
  - Osteoporosis [Unknown]
  - Deafness [Unknown]
  - Choking [Unknown]
  - Oesophageal stenosis [Unknown]
  - Vaginal disorder [Unknown]

NARRATIVE: CASE EVENT DATE: 2003
